FAERS Safety Report 5479454-8 (Version None)
Quarter: 2007Q3

REPORT INFORMATION
  Report Type: 
  Country: None (occurrence: None)
  Receive Date: 20070911
  Receipt Date: 20070424
  Transmission Date: 20080115
  Serious: Yes (Hospitalization)
  Sender: FDA-Public Use
  Company Number: 2007-0011938

PATIENT
  Age: 62 Year
  Sex: Male
  Weight: 86 kg

DRUGS (5)
  1. ATRIPLA [Suspect]
     Indication: HIV INFECTION
     Dosage: 1 IN 1 D, ORAL
     Route: 048
     Dates: start: 20070301, end: 20070326
  2. ASPIRIN [Concomitant]
  3. RISPERDAL [Concomitant]
  4. TERAZOSIN HCL [Concomitant]
  5. THIAMINE (THIAMINE) [Concomitant]

REACTIONS (1)
  - CONVULSION [None]
